FAERS Safety Report 15101651 (Version 1)
Quarter: 2018Q3

REPORT INFORMATION
  Report Type: Spontaneous
  Country: PE (occurrence: PE)
  Receive Date: 20180703
  Receipt Date: 20180703
  Transmission Date: 20181010
  Serious: Yes (Other)
  Sender: FDA-Public Use
  Company Number: PE-APOTEX-2018AP016451

PATIENT
  Age: 41 Year
  Sex: Female

DRUGS (7)
  1. SEROXAT FILM?COATED TABLET [Suspect]
     Active Substance: PAROXETINE HYDROCHLORIDE
     Indication: DEPRESSION
     Dosage: 20 MG, 1D
     Route: 048
     Dates: start: 20130115
  2. SEROXAT FILM?COATED TABLET [Interacting]
     Active Substance: PAROXETINE HYDROCHLORIDE
     Dosage: INCREASE HER DOSE OF SEROXAT (HALF A TABLET ADDITIONALLY
     Route: 065
  3. HYDROCORTISONE SODIUM PHOSPHATE [Interacting]
     Active Substance: HYDROCORTISONE SODIUM PHOSPHATE
     Indication: PRODUCT USED FOR UNKNOWN INDICATION
     Dosage: UNK
     Route: 065
  4. IPRATROPIUM BROMIDE W/SALBUTAMOL [Suspect]
     Active Substance: ALBUTEROL\IPRATROPIUM BROMIDE
     Indication: PRODUCT USED FOR UNKNOWN INDICATION
     Route: 065
  5. LEVOCETIRIZINE [Interacting]
     Active Substance: LEVOCETIRIZINE
     Indication: PRODUCT USED FOR UNKNOWN INDICATION
     Dosage: UNK
     Route: 065
  6. SALMETEROL/FLUTICASONE CASCAN [Suspect]
     Active Substance: FLUTICASONE PROPIONATE\SALMETEROL XINAFOATE
     Indication: PRODUCT USED FOR UNKNOWN INDICATION
     Route: 065
  7. XANAX [Suspect]
     Active Substance: ALPRAZOLAM
     Indication: INSOMNIA
     Route: 065

REACTIONS (5)
  - Asthmatic crisis [Unknown]
  - Drug ineffective [Unknown]
  - Inhibitory drug interaction [Unknown]
  - Anxiety [Unknown]
  - Wrong technique in product usage process [Unknown]
